FAERS Safety Report 5650363-4 (Version None)
Quarter: 2008Q1

REPORT INFORMATION
  Report Type: 
  Country: None (occurrence: None)
  Receive Date: 20080304
  Receipt Date: 20080304
  Transmission Date: 20080703
  Serious: Yes (Other)
  Sender: FDA-Public Use
  Company Number: None

PATIENT
  Age: 22 Year
  Sex: Female
  Weight: 61.2356 kg

DRUGS (2)
  1. ZELNORM [Suspect]
     Indication: CONSTIPATION
     Dosage: 4MG BID PO
     Route: 048
     Dates: start: 20050901, end: 20060910
  2. ZELNORM [Suspect]
     Indication: IRRITABLE BOWEL SYNDROME
     Dosage: 4MG BID PO
     Route: 048
     Dates: start: 20050901, end: 20060910

REACTIONS (5)
  - CARDIAC MURMUR [None]
  - CHEST PAIN [None]
  - ECONOMIC PROBLEM [None]
  - MITRAL VALVE INCOMPETENCE [None]
  - TRICUSPID VALVE INCOMPETENCE [None]
